FAERS Safety Report 4681416-5 (Version None)
Quarter: 2005Q2

REPORT INFORMATION
  Report Type: 
  Country: None (occurrence: None)
  Receive Date: 20050601
  Receipt Date: 20050516
  Transmission Date: 20051028
  Serious: Yes (Other)
  Sender: FDA-Public Use
  Company Number: USA050598178

PATIENT
  Age: 75 Year
  Sex: Female
  Weight: 55 kg

DRUGS (5)
  1. CYMBALTA [Suspect]
     Dosage: 30 MG DAY
     Dates: start: 20050501, end: 20050501
  2. NORVASC [Concomitant]
  3. HYZAAR [Concomitant]
  4. ZOCOR [Concomitant]
  5. FOSAMAX [Concomitant]

REACTIONS (2)
  - DYSSTASIA [None]
  - LOSS OF CONSCIOUSNESS [None]
